FAERS Safety Report 11873467 (Version 1)
Quarter: 2015Q4

REPORT INFORMATION
  Report Type: Spontaneous
  Country: US (occurrence: US)
  Receive Date: 20151228
  Receipt Date: 20151228
  Transmission Date: 20160305
  Serious: No
  Sender: FDA-Public Use
  Company Number: US-009507513-1512USA012615

PATIENT
  Sex: Female

DRUGS (2)
  1. SEROQUEL [Concomitant]
     Active Substance: QUETIAPINE FUMARATE
  2. MAXALT [Suspect]
     Active Substance: RIZATRIPTAN BENZOATE
     Dosage: UNK
     Route: 048

REACTIONS (1)
  - Weight increased [Unknown]
